FAERS Safety Report 4485258-5 (Version None)
Quarter: 2004Q3

REPORT INFORMATION
  Report Type: 
  Country: None (occurrence: None)
  Receive Date: 20040921
  Receipt Date: 20040621
  Transmission Date: 20050211
  Serious: Yes (Hospitalization)
  Sender: FDA-Public Use
  Company Number: 163-20785-04060475

PATIENT
  Age: 48 Year
  Sex: Male
  Weight: 69.6 kg

DRUGS (6)
  1. THALOMID [Suspect]
     Indication: GLIOBLASTOMA MULTIFORME
     Dosage: 50 MG, QD, ORAL
     Route: 048
     Dates: start: 20040508, end: 20040610
  2. CELECOXIB (CELECOXIB) [Suspect]
     Indication: GLIOBLASTOMA MULTIFORME
     Dosage: 100 MG, BID, ORAL
     Route: 048
     Dates: start: 20040508, end: 20040610
  3. ETOPOSIDE [Suspect]
     Indication: GLIOBLASTOMA MULTIFORME
     Dosage: 50 MG, QD X 21 DAYS, ORAL
     Route: 048
     Dates: start: 20040508, end: 20040528
  4. CYCLOPHOSPHAMIDE [Suspect]
     Indication: GLIOBLASTOMA MULTIFORME
     Dosage: 100 UG, QD X 21 DAYS, ORAL
     Route: 048
     Dates: start: 20040529, end: 20040610
  5. KEPPRA [Concomitant]
  6. DILANTIN [Concomitant]

REACTIONS (6)
  - BLOOD SODIUM DECREASED [None]
  - CEREBRAL HAEMORRHAGE [None]
  - COGNITIVE DISORDER [None]
  - CONFUSIONAL STATE [None]
  - CONVULSION [None]
  - DISEASE PROGRESSION [None]
